FAERS Safety Report 5804671-4 (Version None)
Quarter: 2008Q3

REPORT INFORMATION
  Report Type: 
  Country: None (occurrence: None)
  Receive Date: 20080709
  Receipt Date: 20080707
  Transmission Date: 20090109
  Serious: Yes (Life-Threatening, Other)
  Sender: FDA-Public Use
  Company Number: PL-BRISTOL-MYERS SQUIBB COMPANY-14251110

PATIENT
  Age: 38 Year
  Sex: Male
  Weight: 130 kg

DRUGS (8)
  1. ABILIFY [Suspect]
     Indication: SCHIZOPHRENIA, PARANOID TYPE
     Dosage: DATE LAST TIME ADINISTERED 29JUN08
     Route: 048
     Dates: start: 20080522
  2. ABILIFY [Suspect]
     Indication: OBESITY
     Dosage: DATE LAST TIME ADINISTERED 29JUN08
     Route: 048
     Dates: start: 20080522
  3. ZOLAFREN [Concomitant]
     Dates: start: 20071001
  4. RISPOLEPT [Concomitant]
     Dates: start: 20071001
  5. TISERCIN [Concomitant]
     Dates: start: 20071001
  6. PRIDINOL [Concomitant]
     Dosage: 3 DOSAGE FORM = 3 TABLETS
     Dates: start: 20071001
  7. DIPHERGAN [Concomitant]
     Dates: start: 20071001
  8. CLORANXEN [Concomitant]
     Dates: start: 20071001

REACTIONS (3)
  - DEEP VEIN THROMBOSIS [None]
  - OEDEMA PERIPHERAL [None]
  - PAIN IN EXTREMITY [None]
